FAERS Safety Report 19993150 (Version 2)
Quarter: 2021Q4

REPORT INFORMATION
  Report Type: Report from Study
  Country: CA (occurrence: CA)
  Receive Date: 20211025
  Receipt Date: 20211116
  Transmission Date: 20220303
  Serious: Yes (Other)
  Sender: FDA-Public Use
  Company Number: CA-SAMSUNG BIOEPIS-SB-2020-25699

PATIENT
  Age: 62 Year
  Sex: Male
  Weight: 84.8 kg

DRUGS (2)
  1. RENFLEXIS [Suspect]
     Active Substance: INFLIXIMAB-ABDA
     Indication: Crohn^s disease
     Route: 042
     Dates: start: 201912
  2. RENFLEXIS [Suspect]
     Active Substance: INFLIXIMAB-ABDA
     Route: 065
     Dates: start: 20191129

REACTIONS (6)
  - Stoma site rash [Recovered/Resolved]
  - Stomal hernia [Unknown]
  - Dermatitis contact [Unknown]
  - Stoma site erythema [Unknown]
  - Loss of personal independence in daily activities [Unknown]
  - Product use issue [Unknown]

NARRATIVE: CASE EVENT DATE: 20210204
